FAERS Safety Report 7464855-9 (Version None)
Quarter: 2011Q2

REPORT INFORMATION
  Report Type: 
  Country: None (occurrence: None)
  Receive Date: 20110509
  Receipt Date: 20091122
  Transmission Date: 20111010
  Serious: Yes (Hospitalization, Other)
  Sender: FDA-Public Use
  Company Number: US-BAYER-200939901NA

PATIENT
  Age: 43 Year
  Sex: Male
  Weight: 99.773 kg

DRUGS (27)
  1. RED BLOOD CELLS [Concomitant]
     Dosage: 4 UNITS, CARDIOPULMONARY BYPASS
     Route: 042
     Dates: start: 20070726, end: 20070726
  2. PLATELETS [Concomitant]
     Dosage: 40, CARDIOPULMONARY BYPASS
     Route: 042
     Dates: start: 20070726, end: 20070726
  3. ACETYLSALICYLIC ACID SRT [Concomitant]
     Dosage: 81MG DAILY
     Route: 048
     Dates: start: 20040501
  4. FUROSEMIDE [Concomitant]
     Dosage: 40MG
     Route: 042
     Dates: start: 20060726, end: 20060726
  5. TRASYLOL [Suspect]
     Indication: CORONARY ARTERY BYPASS
     Dosage: 200 CC, FOLLOWED BY AN INFUSION OF 50 CC /HR
     Route: 042
     Dates: start: 20070726, end: 20070726
  6. TRASYLOL [Suspect]
     Indication: MITRAL VALVE REPAIR
  7. ALTACE [Concomitant]
     Dosage: 10 MG DAILY
     Route: 048
     Dates: start: 20060321
  8. ALBUMIN NOS [Concomitant]
     Dosage: 25 GM, CARDIOPULMONARY BYPASS
     Dates: start: 20070726, end: 20070726
  9. AZITHROMYCIN [Concomitant]
     Dosage: 250MG
     Route: 048
     Dates: start: 20070124
  10. REGULAR INSULIN [Concomitant]
     Dosage: UNK
     Route: 058
     Dates: start: 20060308
  11. REGULAR INSULIN [Concomitant]
     Dosage: UNK
     Route: 058
     Dates: start: 20050131
  12. REGULAR INSULIN [Concomitant]
     Dosage: 13 UNITS, CARDIOPULMONARY BYPASS
     Dates: start: 20070726, end: 20070726
  13. ISOSORBIDE DINITRATE [Concomitant]
     Dosage: 10 MG
     Route: 048
     Dates: start: 20060626
  14. TRICOR [Concomitant]
     Dosage: 145MG DAILY
     Route: 048
     Dates: start: 20051114
  15. AVAPRO [Concomitant]
     Dosage: 150 MG DAILY
     Route: 048
     Dates: start: 20060731
  16. FUROSEMIDE [Concomitant]
     Dosage: 80MG DAILY
     Route: 048
     Dates: start: 20060427
  17. CARDIOPLEGIA [Concomitant]
     Dosage: 1400 ML, CARDIOPULMONARY BYPASS
     Dates: start: 20070726, end: 20070726
  18. LISINOPRIL [Concomitant]
     Dosage: 20 MG
     Route: 048
     Dates: start: 20030906
  19. COREG [Concomitant]
     Dosage: 50 MG DAILY
     Route: 048
     Dates: start: 20060512
  20. TRASYLOL [Suspect]
     Indication: TRICUSPID VALVE REPAIR
  21. FRESH FROZEN PLASMA [Concomitant]
     Dosage: 4 UNITS, CARDIOPULMONARY BYPASS
     Route: 042
     Dates: start: 20070726, end: 20070726
  22. ANCEF [Concomitant]
     Dosage: 1 GM
     Route: 042
     Dates: start: 20070726, end: 20070726
  23. AMIODARONE [Concomitant]
     Dosage: 150MG THEN DRIP
     Route: 042
     Dates: start: 20070726, end: 20070726
  24. LEVAQUIN [Concomitant]
     Dosage: 500 MG DAILY
     Route: 048
     Dates: start: 20070407
  25. SIMVASTATIN [Concomitant]
     Dosage: 10 MG DAILY
     Route: 048
     Dates: start: 20060318
  26. VANCOMYCIN [Concomitant]
     Dosage: 1 GM
     Route: 042
     Dates: start: 20070726, end: 20070726
  27. HEPARIN [Concomitant]
     Dosage: 20,000 UNITS
     Route: 042
     Dates: start: 20070726, end: 20070726

REACTIONS (12)
  - EMOTIONAL DISTRESS [None]
  - ANXIETY [None]
  - RENAL IMPAIRMENT [None]
  - STRESS [None]
  - UNEVALUABLE EVENT [None]
  - INJURY [None]
  - ANHEDONIA [None]
  - RENAL INJURY [None]
  - FEAR [None]
  - RENAL FAILURE [None]
  - PAIN [None]
  - CARDIAC DISORDER [None]
